FAERS Safety Report 6911128-6 (Version None)
Quarter: 2010Q3

REPORT INFORMATION
  Report Type: 
  Country: None (occurrence: None)
  Receive Date: 20100806
  Receipt Date: 20100803
  Transmission Date: 20110219
  Serious: Yes (Disabling, Other)
  Sender: FDA-Public Use
  Company Number: US-MERCK-0805USA02812

PATIENT
  Age: 53 Year
  Sex: Female

DRUGS (2)
  1. FOSAMAX [Suspect]
     Route: 048
     Dates: start: 20000101, end: 20060901
  2. ASPIRIN [Concomitant]
     Route: 065
     Dates: start: 19810101

REACTIONS (16)
  - ANXIETY [None]
  - ARTHRITIS [None]
  - ARTHROPATHY [None]
  - BONE DENSITY DECREASED [None]
  - DENTAL CARIES [None]
  - DEPRESSION [None]
  - DIABETES MELLITUS [None]
  - HYPERTENSION [None]
  - NERVE INJURY [None]
  - OSTEONECROSIS OF JAW [None]
  - PERIODONTITIS [None]
  - SENSITIVITY OF TEETH [None]
  - SINUS DISORDER [None]
  - THYROID DISORDER [None]
  - TOOTH DISORDER [None]
  - TOOTH EXTRACTION [None]
